FAERS Safety Report 7628412-3 (Version None)
Quarter: 2011Q3

REPORT INFORMATION
  Report Type: 
  Country: None (occurrence: None)
  Receive Date: 20110722
  Receipt Date: 20110715
  Transmission Date: 20111222
  Serious: No
  Sender: FDA-Public Use
  Company Number: US-PFIZER INC-2011107261

PATIENT
  Sex: Female
  Weight: 63.5 kg

DRUGS (6)
  1. AROMASIN [Suspect]
     Dosage: 25 MG, 1X/DAY
  2. LUNESTA [Concomitant]
  3. MECLIZINE [Concomitant]
  4. AROMASIN [Suspect]
     Indication: BREAST CANCER
     Dosage: 25 MG, 1X/DAY
     Route: 048
     Dates: start: 20080501, end: 20081201
  5. ASACOL [Concomitant]
  6. VALACICLOVIR [Concomitant]

REACTIONS (5)
  - INSOMNIA [None]
  - INFLUENZA [None]
  - MYALGIA [None]
  - HOT FLUSH [None]
  - ARTHRALGIA [None]
